FAERS Safety Report 9399444 (Version 2)
Quarter: 2013Q3

REPORT INFORMATION
  Report Type: Spontaneous
  Country: US (occurrence: None)
  Receive Date: 20130710
  Receipt Date: 20130711
  Transmission Date: 20140515
  Serious: Yes (Other)
  Sender: FDA-Public Use
  Company Number: SYM-2013-05376

PATIENT
  Sex: 0

DRUGS (1)
  1. ZYCLARA [Suspect]
     Indication: PRECANCEROUS CELLS PRESENT
     Route: 061
     Dates: start: 20130223, end: 20130309

REACTIONS (6)
  - Staphylococcal infection [None]
  - Erythema [None]
  - Scab [None]
  - Rash pustular [None]
  - Application site erythema [None]
  - Expired drug administered [None]
